FAERS Safety Report 6184431-8 (Version None)
Quarter: 2009Q2

REPORT INFORMATION
  Report Type: 
  Country: None (occurrence: None)
  Receive Date: 20090508
  Receipt Date: 20090505
  Transmission Date: 20091009
  Serious: Yes (Hospitalization, Other)
  Sender: FDA-Public Use
  Company Number: US-ABBOTT-08P-163-0457736-00

PATIENT
  Sex: Female
  Weight: 63.56 kg

DRUGS (8)
  1. HUMIRA [Suspect]
     Indication: RHEUMATOID ARTHRITIS
     Route: 058
     Dates: start: 20030801
  2. HUMIRA [Suspect]
     Route: 058
     Dates: start: 20080515
  3. PERCOCET [Concomitant]
     Indication: PAIN
  4. OXYCONTIN [Concomitant]
     Indication: DRUG USE FOR UNKNOWN INDICATION
  5. NAPROSYN [Concomitant]
     Indication: RHEUMATOID ARTHRITIS
  6. PREDNISONE [Concomitant]
     Indication: RHEUMATOID ARTHRITIS
  7. MULTIPLE VITAMINS [Concomitant]
     Indication: ROUTINE HEALTH MAINTENANCE
  8. NEXIUM [Concomitant]
     Indication: GASTROOESOPHAGEAL REFLUX DISEASE

REACTIONS (18)
  - ASTHENIA [None]
  - BALANCE DISORDER [None]
  - BLOOD PRESSURE DECREASED [None]
  - CARTILAGE INJURY [None]
  - DEMENTIA [None]
  - ENTEROCOCCAL INFECTION [None]
  - ESCHERICHIA INFECTION [None]
  - FALL [None]
  - FATIGUE [None]
  - HEADACHE [None]
  - INFECTION [None]
  - LOWER LIMB FRACTURE [None]
  - NORMAL PRESSURE HYDROCEPHALUS [None]
  - PSEUDOMONAS INFECTION [None]
  - SHUNT INFECTION [None]
  - STAPHYLOCOCCAL INFECTION [None]
  - URINARY INCONTINENCE [None]
  - VENTRICULOPERITONEAL SHUNT MALFUNCTION [None]
